FAERS Safety Report 5760138-3 (Version None)
Quarter: 2008Q2

REPORT INFORMATION
  Report Type: 
  Country: None (occurrence: None)
  Receive Date: 20080605
  Receipt Date: 20080512
  Transmission Date: 20081010
  Serious: No
  Sender: FDA-Public Use
  Company Number: US-BOEHRINGER INGELHEIM GMBH, GERMANY-2008-BP-05284BP

PATIENT
  Sex: Female

DRUGS (6)
  1. SPIRIVA [Suspect]
     Indication: EMPHYSEMA
     Route: 055
     Dates: start: 20071101
  2. ADVAIR DISKUS 100/50 [Concomitant]
  3. MDI (UNSPECIFIED) [Concomitant]
  4. BP PILL [Concomitant]
     Indication: BLOOD PRESSURE
  5. WATER PILL [Concomitant]
     Indication: DIURETIC THERAPY
  6. VITAMIN B-12 [Concomitant]

REACTIONS (3)
  - COUGH [None]
  - DYSPHONIA [None]
  - DYSPNOEA [None]
